FAERS Safety Report 19734893 (Version 3)
Quarter: 2023Q2

REPORT INFORMATION
  Report Type: Spontaneous
  Country: US (occurrence: US)
  Receive Date: 20210824
  Receipt Date: 20230630
  Transmission Date: 20230721
  Serious: No
  Sender: FDA-Public Use
  Company Number: US-GW PHARMA-202108USGW04052

PATIENT

DRUGS (3)
  1. EPIDIOLEX [Suspect]
     Active Substance: CANNABIDIOL
     Indication: Lennox-Gastaut syndrome
     Dosage: 400 MILLIGRAM
     Route: 048
     Dates: start: 202104, end: 2021
  2. EPIDIOLEX [Suspect]
     Active Substance: CANNABIDIOL
     Indication: Status epilepticus
     Dosage: 200 MILLIGRAM
     Route: 048
     Dates: start: 20210703
  3. EPIDIOLEX [Suspect]
     Active Substance: CANNABIDIOL
     Dosage: 7 MILLILITER
     Dates: start: 202203

REACTIONS (1)
  - Diarrhoea [Not Recovered/Not Resolved]

NARRATIVE: CASE EVENT DATE: 20210101
